FAERS Safety Report 5168549-4 (Version None)
Quarter: 2006Q4

REPORT INFORMATION
  Report Type: 
  Country: None (occurrence: None)
  Receive Date: 20061208
  Receipt Date: 20061129
  Transmission Date: 20070319
  Serious: Yes (Hospitalization, Other)
  Sender: FDA-Public Use
  Company Number: US-ABBOTT-06P-163-0352214-00

PATIENT
  Age: 11 Year
  Sex: Female

DRUGS (4)
  1. VALPROATE SODIUM [Suspect]
     Indication: IMPULSIVE BEHAVIOUR
     Dosage: NOT REPORTED
  2. VALPROATE SODIUM [Suspect]
     Dosage: NOT REPORTED
  3. RISPERDONE [Concomitant]
     Indication: DRUG USE FOR UNKNOWN INDICATION
     Dosage: NOT REPORTED
  4. ATOMOXETINE [Concomitant]
     Indication: DRUG USE FOR UNKNOWN INDICATION
     Dosage: NOT REPORTED

REACTIONS (2)
  - CHOREA [None]
  - ENCEPHALOPATHY [None]
